FAERS Safety Report 13523308 (Version 1)
Quarter: 2020Q3

REPORT INFORMATION
  Report Type: Report from Study
  Country: TW (occurrence: TW)
  Receive Date: 20170508
  Receipt Date: 20170508
  Transmission Date: 20201105
  Serious: Yes (Hospitalization)
  Sender: FDA-Public Use
  Company Number: TW-ASTRAZENECA-2017SE25740

PATIENT
  Age: 56 Year
  Sex: Male
  Weight: 53.5 kg

DRUGS (8)
  1. EURODIN (ESTAZOLAM) [Concomitant]
     Active Substance: ESTAZOLAM
     Indication: PROPHYLAXIS
     Route: 048
     Dates: start: 20161220
  2. MORPHINE [Concomitant]
     Active Substance: MORPHINE
     Indication: METASTASES TO BONE
     Route: 048
     Dates: start: 20161226
  3. TREMELIMUMAB. [Suspect]
     Active Substance: TREMELIMUMAB
     Indication: NON-SMALL CELL LUNG CANCER
     Route: 042
     Dates: start: 20161003
  4. MEDI4736 [Suspect]
     Active Substance: DURVALUMAB
     Indication: NON-SMALL CELL LUNG CANCER
     Route: 042
     Dates: start: 20161003
  5. DICLOFENAC SODIUM. [Concomitant]
     Active Substance: DICLOFENAC SODIUM
     Indication: METASTASES TO BONE
     Route: 048
     Dates: start: 20160410, end: 20170313
  6. XGEVA [Concomitant]
     Active Substance: DENOSUMAB
     Indication: METASTASES TO BONE
     Route: 058
     Dates: start: 20161024
  7. MOBIC [Concomitant]
     Active Substance: MELOXICAM
     Indication: METASTASES TO BONE
     Route: 048
     Dates: start: 20160425
  8. NEXIUM [Concomitant]
     Active Substance: ESOMEPRAZOLE MAGNESIUM
     Indication: PROPHYLAXIS
     Route: 048
     Dates: start: 20161226

REACTIONS (1)
  - Drug reaction with eosinophilia and systemic symptoms [Recovered/Resolved]

NARRATIVE: CASE EVENT DATE: 20170309
